FAERS Safety Report 4382111-2 (Version None)
Quarter: 2004Q2

REPORT INFORMATION
  Report Type: 
  Country: None (occurrence: None)
  Receive Date: 20040603
  Receipt Date: 20030331
  Transmission Date: 20050107
  Serious: Yes (Death)
  Sender: FDA-Public Use
  Company Number: 200312961US

PATIENT
  Sex: Male

DRUGS (2)
  1. LOVENOX [Suspect]
     Indication: POSTOPERATIVE CARE
     Dates: start: 20020101
  2. WARFARIN SODIUM [Concomitant]

REACTIONS (1)
  - HAEMORRHAGE [None]
